FAERS Safety Report 20624934 (Version 2)
Quarter: 2022Q2

REPORT INFORMATION
  Report Type: Spontaneous
  Country: US (occurrence: US)
  Receive Date: 20220323
  Receipt Date: 20220614
  Transmission Date: 20220721
  Serious: Yes (Death, Life-Threatening, Disabling, Other)
  Sender: FDA-Public Use
  Company Number: US-JNJFOC-20220337102

PATIENT
  Age: 24 Year
  Sex: Female

DRUGS (7)
  1. INVEGA SUSTENNA [Suspect]
     Active Substance: PALIPERIDONE PALMITATE
     Indication: Schizoaffective disorder
     Route: 030
     Dates: start: 20200417
  2. INVEGA SUSTENNA [Suspect]
     Active Substance: PALIPERIDONE PALMITATE
     Route: 030
     Dates: start: 20200618
  3. INVEGA SUSTENNA [Suspect]
     Active Substance: PALIPERIDONE PALMITATE
  4. BUPROPION [Concomitant]
     Active Substance: BUPROPION
     Indication: Depression
     Dates: start: 20200524, end: 20200625
  5. FOCALIN XR [Concomitant]
     Active Substance: DEXMETHYLPHENIDATE HYDROCHLORIDE
     Indication: Fatigue
     Dates: start: 20200619, end: 20200625
  6. GUANFACINE [Concomitant]
     Active Substance: GUANFACINE
     Indication: Vision blurred
     Dosage: 1MG-2MG
     Dates: start: 20200429, end: 20200625
  7. DEPLIN [LEVOMEFOLIC ACID] [Concomitant]
     Indication: Depressed mood
     Dates: start: 20200429, end: 20200625

REACTIONS (11)
  - Intentional overdose [Fatal]
  - Suicidal ideation [Not Recovered/Not Resolved]
  - Mental impairment [Unknown]
  - Dyskinesia [Unknown]
  - Abnormal weight gain [Unknown]
  - Feeling abnormal [Unknown]
  - Exercise tolerance decreased [Unknown]
  - Lethargy [Unknown]
  - Gait disturbance [Unknown]
  - Depression [Not Recovered/Not Resolved]
  - Off label use [Unknown]

NARRATIVE: CASE EVENT DATE: 20200428
